FAERS Safety Report 14185751 (Version 3)
Quarter: 2018Q1

REPORT INFORMATION
  Report Type: Report from Study
  Country: None (occurrence: FR)
  Receive Date: 20171114
  Receipt Date: 20180206
  Transmission Date: 20180508
  Serious: Yes (Other)
  Sender: FDA-Public Use
  Company Number: FR-ABBVIE-17K-056-2158503-00

PATIENT
  Age: 66 Year
  Sex: Female

DRUGS (2)
  1. DUODOPA [Suspect]
     Active Substance: CARBIDOPA\LEVODOPA
     Dosage: MD: 6 ML; CFR DURING THE DAY: 6 ML/H; CFR DURING THE NIGHT: 3 ML/H; ED: 6ML
     Route: 050
  2. DUODOPA [Suspect]
     Active Substance: CARBIDOPA\LEVODOPA
     Indication: PARKINSON^S DISEASE
     Route: 050
     Dates: start: 201607

REACTIONS (9)
  - Hallucination [Recovering/Resolving]
  - Dyspnoea [Unknown]
  - Pain [Unknown]
  - Lung infection [Unknown]
  - Freezing phenomenon [Unknown]
  - Hyperthermia [Unknown]
  - Cough [Unknown]
  - Tremor [Unknown]
  - Musculoskeletal stiffness [Unknown]

NARRATIVE: CASE EVENT DATE: 201711
